FAERS Safety Report 12284323 (Version 2)
Quarter: 2016Q2

REPORT INFORMATION
  Report Type: Spontaneous
  Country: US (occurrence: US)
  Receive Date: 20160420
  Receipt Date: 20160421
  Transmission Date: 20160815
  Serious: No
  Sender: FDA-Public Use
  Company Number: US-JNJFOC-20160321240

PATIENT
  Age: 52 Year
  Sex: Male

DRUGS (7)
  1. VITAMIN D [Concomitant]
     Active Substance: CHOLECALCIFEROL
  2. ZYTIGA [Suspect]
     Active Substance: ABIRATERONE ACETATE
     Indication: PROSTATE CANCER
     Route: 048
  3. ZOMETA [Concomitant]
     Active Substance: ZOLEDRONIC ACID
  4. PREDNISONE. [Concomitant]
     Active Substance: PREDNISONE
  5. LUPRON DEPOT-PED [Concomitant]
     Active Substance: LEUPROLIDE ACETATE
  6. CALCIUM [Concomitant]
     Active Substance: CALCIUM
  7. VITAMIN D2 [Concomitant]
     Active Substance: ERGOCALCIFEROL

REACTIONS (2)
  - Weight fluctuation [Unknown]
  - Depression [Unknown]
